FAERS Safety Report 10021435 (Version 1)
Quarter: 2014Q1

REPORT INFORMATION
  Report Type: Report from Study
  Country: AT (occurrence: AT)
  Receive Date: 20140319
  Receipt Date: 20140319
  Transmission Date: 20141002
  Serious: Yes (Other)
  Sender: FDA-Public Use
  Company Number: AT-VERTEX PHARMACEUTICALS INC-2014-001335

PATIENT
  Age: 71 Year
  Sex: Female

DRUGS (6)
  1. INCIVO [Suspect]
     Indication: HEPATITIS C
     Route: 065
  2. PEGASYS [Suspect]
     Indication: HEPATITIS C
     Dosage: DOSAGE FORM: UNSPECIFIED
     Route: 065
  3. COPEGUS [Suspect]
     Indication: HEPATITIS C
     Dosage: 400 MG, UNK
     Route: 065
  4. COPEGUS [Suspect]
     Dosage: 600 MG, UNK
     Route: 065
  5. COPEGUS [Suspect]
     Dosage: 800 MG, UNK
     Route: 065
  6. SEROPRAM [Concomitant]
     Dosage: 20 MG, UNK
     Route: 065

REACTIONS (5)
  - White blood cell count decreased [Not Recovered/Not Resolved]
  - Blood creatinine increased [Recovered/Resolved]
  - Nausea [Recovered/Resolved]
  - Haemoglobin decreased [Recovered/Resolved]
  - General physical condition abnormal [Unknown]
